FAERS Safety Report 6883790-8 (Version None)
Quarter: 2010Q3

REPORT INFORMATION
  Report Type: 
  Country: None (occurrence: None)
  Receive Date: 20100727
  Receipt Date: 20100720
  Transmission Date: 20110219
  Serious: Yes (Disabling, Other)
  Sender: FDA-Public Use
  Company Number: ACO_01529_2010

PATIENT
  Sex: Female
  Weight: 86.1834 kg

DRUGS (5)
  1. AMPYRA [Suspect]
     Indication: GAIT DISTURBANCE
     Dosage: (10 MG QD ORAL), (10 MG BID ORAL)
     Route: 048
     Dates: start: 20100709, end: 20100715
  2. AMPYRA [Suspect]
     Indication: GAIT DISTURBANCE
     Dosage: (10 MG QD ORAL), (10 MG BID ORAL)
     Route: 048
     Dates: start: 20100716
  3. COPAXONE /03175301/ [Concomitant]
  4. BACLOFEN [Concomitant]
  5. NEIXIUM /01479302/ [Concomitant]

REACTIONS (4)
  - ACTIVITIES OF DAILY LIVING IMPAIRED [None]
  - CONSTIPATION [None]
  - FATIGUE [None]
  - INSOMNIA [None]
